FAERS Safety Report 4900110-6 (Version None)
Quarter: 2006Q1

REPORT INFORMATION
  Report Type: 
  Country: None (occurrence: None)
  Receive Date: 20060203
  Receipt Date: 20051115
  Transmission Date: 20060701
  Serious: Yes (Death, Hospitalization)
  Sender: FDA-Public Use
  Company Number: IT-AVENTIS-200520038GDDC

PATIENT
  Age: 94 Year
  Sex: Female

DRUGS (8)
  1. RIFADIN [Suspect]
     Indication: PULMONARY TUBERCULOSIS
     Route: 048
     Dates: start: 20051028, end: 20051105
  2. NICIZINA [Suspect]
     Indication: PULMONARY TUBERCULOSIS
  3. PANTECTA [Concomitant]
     Route: 048
  4. ROCEPHIN [Concomitant]
     Dates: start: 20051005, end: 20051024
  5. LANOXIN [Concomitant]
     Route: 048
  6. LEVOXACIN [Concomitant]
     Dates: start: 20051005, end: 20051024
  7. MIAMBUTOL [Concomitant]
     Dates: start: 20051028, end: 20051105
  8. BENADON [Concomitant]
     Dates: start: 20051028, end: 20051105

REACTIONS (2)
  - DEATH [None]
  - HEPATITIS CHOLESTATIC [None]
